FAERS Safety Report 25111324 (Version 2)
Quarter: 2025Q2

REPORT INFORMATION
  Report Type: Report from Study
  Country: CA (occurrence: CA)
  Receive Date: 20250324
  Receipt Date: 20250519
  Transmission Date: 20250717
  Serious: Yes (Other)
  Sender: CSL BEHRING
  Company Number: CA-BEH-2025199181

PATIENT
  Age: 59 Year
  Sex: Female
  Weight: 80 kg

DRUGS (12)
  1. HIZENTRA [Suspect]
     Active Substance: HUMAN IMMUNOGLOBULIN G
     Indication: Secondary immunodeficiency
     Dosage: UNK, QW
     Route: 065
     Dates: start: 20230717
  2. HIZENTRA [Suspect]
     Active Substance: HUMAN IMMUNOGLOBULIN G
     Dosage: 8 G, QW
     Route: 058
     Dates: start: 20230717
  3. CEPHALEXIN [Concomitant]
     Active Substance: CEPHALEXIN
  4. ZOLPIDEM [Concomitant]
     Active Substance: ZOLPIDEM TARTRATE
  5. IRBESARTAN [Concomitant]
     Active Substance: IRBESARTAN
  6. SYSTANE (HYPROMELLOSE 2910 (4000 MPA.S)) [Concomitant]
     Active Substance: HYPROMELLOSE 2910 (4000 MPA.S)
  7. FUSIDIC ACID [Concomitant]
     Active Substance: FUSIDIC ACID
  8. LIDOCAINE [Concomitant]
     Active Substance: LIDOCAINE
  9. CLOTRIMAZOLE [Concomitant]
     Active Substance: CLOTRIMAZOLE
  10. CLOTRIMAZOLE [Concomitant]
     Active Substance: CLOTRIMAZOLE
  11. HYDROCORTISONE [Concomitant]
     Active Substance: HYDROCORTISONE
  12. BETADERM [Concomitant]
     Active Substance: BETAMETHASONE VALERATE

REACTIONS (8)
  - Infusion site infection [Recovering/Resolving]
  - Nausea [Unknown]
  - Vomiting [Unknown]
  - Infusion site mass [Recovering/Resolving]
  - Pyrexia [Recovering/Resolving]
  - Infusion site erythema [Recovering/Resolving]
  - Infusion site warmth [Recovering/Resolving]
  - Infusion site pain [Recovering/Resolving]

NARRATIVE: CASE EVENT DATE: 20250301
